FAERS Safety Report 8570380-4 (Version None)
Quarter: 2012Q3

REPORT INFORMATION
  Report Type: 
  Country: None (occurrence: None)
  Receive Date: 20120803
  Receipt Date: 20120802
  Transmission Date: 20120928
  Serious: Yes (Other)
  Sender: FDA-Public Use
  Company Number: GXKR2012DE002476

PATIENT
  Age: 18 Year
  Sex: Female

DRUGS (5)
  1. CYCLOPHOSPHAMIDE [Concomitant]
     Indication: LEUKAEMIA
     Route: 065
  2. CYTARABINE [Concomitant]
     Indication: LEUKAEMIA
     Route: 065
  3. METHOTREXATE [Suspect]
     Indication: LEUKAEMIA
     Route: 065
  4. DAUNORUBICIN HCL [Concomitant]
     Indication: LEUKAEMIA
     Route: 065
  5. ETOPOSIDE [Concomitant]
     Indication: LEUKAEMIA

REACTIONS (1)
  - RETINAL PIGMENTATION [None]
